FAERS Safety Report 5269937-8 (Version None)
Quarter: 2007Q1

REPORT INFORMATION
  Report Type: 
  Country: None (occurrence: None)
  Receive Date: 20061214
  Receipt Date: 20060830
  Transmission Date: 20070707
  Serious: Yes (Hospitalization)
  Sender: FDA-Public Use
  Company Number: 2006056943

PATIENT
  Age: 73 Year
  Sex: Female
  Weight: 131.5431 kg

DRUGS (2)
  1. BEXTRA [Suspect]
     Dates: start: 20040211, end: 20040301
  2. VIOXX [Suspect]
     Dates: start: 20020213, end: 20040526

REACTIONS (1)
  - MYOCARDIAL INFARCTION [None]
